FAERS Safety Report 18215159 (Version 5)
Quarter: 2022Q4

REPORT INFORMATION
  Report Type: Spontaneous
  Country: US (occurrence: US)
  Receive Date: 20200831
  Receipt Date: 20221213
  Transmission Date: 20230112
  Serious: No
  Sender: FDA-Public Use
  Company Number: US-PFIZER INC-2019554291

PATIENT
  Age: 62 Year
  Sex: Female

DRUGS (3)
  1. PRISTIQ EXTENDED-RELEASE [Suspect]
     Active Substance: DESVENLAFAXINE SUCCINATE
     Indication: Major depression
     Dosage: 50 MG, DAILY (1 TABLET DAILY WITH 25 MG TABLET 90 DAYS)
     Route: 048
  2. PRISTIQ EXTENDED-RELEASE [Suspect]
     Active Substance: DESVENLAFAXINE SUCCINATE
     Dosage: 25 MG, DAILY (1 TABLET DAILY WITH 50 MG TABLET 90 DAYS)
     Route: 048
  3. PRISTIQ EXTENDED-RELEASE [Suspect]
     Active Substance: DESVENLAFAXINE SUCCINATE
     Dosage: PRISTIQ ER 75 MG 1 DAILY

REACTIONS (2)
  - Product prescribing error [Unknown]
  - Anxiety disorder [Unknown]
